FAERS Safety Report 9300590 (Version 1)
Quarter: 2013Q2

REPORT INFORMATION
  Report Type: Spontaneous
  Country: GB (occurrence: GB)
  Receive Date: 20130521
  Receipt Date: 20130521
  Transmission Date: 20140414
  Serious: Yes (Hospitalization, Other)
  Sender: FDA-Public Use
  Company Number: PHHY2013GB049490

PATIENT
  Age: 32 Year
  Sex: Male

DRUGS (5)
  1. CLOZAPINE [Suspect]
     Dosage: 700 MG, FOR 15 YEARS
  2. CORTIPHENOL H [Suspect]
     Dosage: UNK
  3. LOPERAMIDE [Concomitant]
     Dosage: UNK
  4. DOMPERIDONE [Concomitant]
     Dosage: UNK
  5. HYOSCINE BUTYLBROMIDE [Concomitant]
     Dosage: UNK

REACTIONS (15)
  - Colitis ischaemic [Recovered/Resolved]
  - Gastric hypomotility [Recovered/Resolved]
  - Necrotising colitis [Recovered/Resolved]
  - Large intestinal obstruction [Recovered/Resolved]
  - White blood cell count increased [Recovered/Resolved]
  - C-reactive protein increased [Recovered/Resolved]
  - Aspartate aminotransferase increased [Recovered/Resolved]
  - Alanine aminotransferase increased [Recovered/Resolved]
  - Gamma-glutamyltransferase increased [Recovered/Resolved]
  - Diarrhoea [Recovered/Resolved]
  - Vomiting [Recovered/Resolved]
  - Abdominal pain [Recovered/Resolved]
  - Colitis ulcerative [Recovered/Resolved]
  - Psychotic disorder [Recovered/Resolved]
  - Mental impairment [Recovered/Resolved]
